FAERS Safety Report 15570514 (Version 1)
Quarter: 2018Q4

REPORT INFORMATION
  Report Type: Spontaneous
  Country: US (occurrence: US)
  Receive Date: 20181025
  Receipt Date: 20181025
  Transmission Date: 20190205
  Serious: Yes (Hospitalization)
  Sender: FDA-Public Use
  Company Number: None

PATIENT
  Age: 72 Year
  Sex: Female

DRUGS (1)
  1. OCTREOTIDE 5 ML MDV [Suspect]
     Active Substance: OCTREOTIDE
     Indication: CROHN^S DISEASE
     Dosage: 60MCG IN AM, 50MCG IN PM BID SC
     Route: 058
     Dates: start: 20160616

REACTIONS (2)
  - Diarrhoea [None]
  - Dehydration [None]

NARRATIVE: CASE EVENT DATE: 20180909
